FAERS Safety Report 10705621 (Version 5)
Quarter: 2015Q3

REPORT INFORMATION
  Report Type: Spontaneous
  Country: US (occurrence: US)
  Receive Date: 20150112
  Receipt Date: 20150708
  Transmission Date: 20151125
  Serious: No
  Sender: FDA-Public Use
  Company Number: US-GLAXOSMITHKLINE-A1075089A

PATIENT
  Age: 45 Year
  Sex: Female

DRUGS (12)
  1. PROMACTA [Suspect]
     Active Substance: ELTROMBOPAG OLAMINE
     Indication: IMMUNE THROMBOCYTOPENIC PURPURA
     Dosage: 50 MG, QD
     Route: 048
     Dates: start: 20140515, end: 20140604
  2. PROMACTA [Interacting]
     Active Substance: ELTROMBOPAG OLAMINE
     Indication: NEOPLASM MALIGNANT
     Dosage: 25 MG, QD
     Route: 048
     Dates: start: 20140605
  3. MORPHINE [Concomitant]
     Active Substance: MORPHINE
  4. ROPINIROLE. [Concomitant]
     Active Substance: ROPINIROLE
  5. ATIVAN [Concomitant]
     Active Substance: LORAZEPAM
  6. DEXILANT [Concomitant]
     Active Substance: DEXLANSOPRAZOLE
  7. AMBIEN [Concomitant]
     Active Substance: ZOLPIDEM TARTRATE
  8. SANCUSO [Interacting]
     Active Substance: GRANISETRON
     Indication: PRODUCT USED FOR UNKNOWN INDICATION
     Route: 065
  9. PROMACTA [Interacting]
     Active Substance: ELTROMBOPAG OLAMINE
     Dosage: 50 MG, QD
     Route: 048
     Dates: start: 20150509
  10. DOXEPIN [Concomitant]
     Active Substance: DOXEPIN
  11. ZOFRAN [Concomitant]
     Active Substance: ONDANSETRON HYDROCHLORIDE
  12. PHENERGAN [Concomitant]
     Active Substance: PROMETHAZINE HYDROCHLORIDE

REACTIONS (9)
  - Drug interaction [Not Recovered/Not Resolved]
  - Depression [Not Recovered/Not Resolved]
  - Extra dose administered [Unknown]
  - Anxiety [Not Recovered/Not Resolved]
  - Pain in extremity [Unknown]
  - Adverse drug reaction [Unknown]
  - Vomiting [Unknown]
  - Bone pain [Unknown]
  - Nausea [Unknown]

NARRATIVE: CASE EVENT DATE: 20140521
